FAERS Safety Report 23695896 (Version 1)
Quarter: 2024Q2

REPORT INFORMATION
  Report Type: Spontaneous
  Country: CN (occurrence: None)
  Receive Date: 20240402
  Receipt Date: 20240402
  Transmission Date: 20240716
  Serious: Yes (Other)
  Sender: FDA-Public Use
  Company Number: 2024A074916

PATIENT
  Age: 18621 Day
  Sex: Female
  Weight: 62 kg

DRUGS (2)
  1. BUDESONIDE [Suspect]
     Active Substance: BUDESONIDE
     Indication: Pneumonia
     Route: 055
     Dates: start: 20240318, end: 20240318
  2. LEVALBUTEROL HYDROCHLORIDE [Suspect]
     Active Substance: LEVALBUTEROL HYDROCHLORIDE
     Indication: Pneumonia
     Route: 055
     Dates: start: 20240318, end: 20240318

REACTIONS (1)
  - Cardiac flutter [Recovering/Resolving]

NARRATIVE: CASE EVENT DATE: 20240318
